FAERS Safety Report 9718256 (Version 1)
Quarter: 2013Q4

REPORT INFORMATION
  Report Type: Spontaneous
  Country: US (occurrence: US)
  Receive Date: 20131125
  Receipt Date: 20131125
  Transmission Date: 20140711
  Serious: No
  Sender: FDA-Public Use
  Company Number: US-VIVUS-2013V1000114

PATIENT
  Age: 55 Year
  Sex: Male
  Weight: 126.21 kg

DRUGS (21)
  1. QSYMIA 7.5MG/46MG [Suspect]
     Indication: OVERWEIGHT
     Route: 048
     Dates: start: 20130103, end: 20130216
  2. QSYMIA 3.75MG/23MG [Suspect]
     Indication: OVERWEIGHT
     Route: 048
     Dates: start: 20121220, end: 20130102
  3. BYSTOLIC [Concomitant]
     Indication: HYPERTENSION
     Route: 048
  4. ASPIRIN [Concomitant]
     Indication: CARDIAC DISORDER
     Route: 048
  5. RAMIPRIL [Concomitant]
     Indication: DIABETES MELLITUS
     Route: 048
  6. ACTOS [Concomitant]
     Indication: DIABETES MELLITUS
     Route: 048
  7. METFORMIN [Concomitant]
     Indication: DIABETES MELLITUS
     Route: 048
  8. METFORMIN [Concomitant]
     Route: 048
  9. LIPITOR [Concomitant]
     Indication: BLOOD CHOLESTEROL INCREASED
     Route: 048
  10. LIPOFEN [Concomitant]
     Indication: BLOOD CHOLESTEROL INCREASED
     Route: 048
  11. VICTOZA [Concomitant]
     Indication: DIABETES MELLITUS
  12. JANUVIA [Concomitant]
     Indication: DIABETES MELLITUS
     Route: 048
  13. TAMSULOSIN [Concomitant]
     Route: 048
  14. ALLEGRA-D [Concomitant]
     Indication: HYPERSENSITIVITY
     Route: 048
  15. VITAMIN D [Concomitant]
     Route: 048
  16. CRANBERRY [Concomitant]
     Route: 048
  17. FIBER [Concomitant]
     Route: 048
  18. FISH OIL [Concomitant]
     Route: 048
  19. FLAXSEED [Concomitant]
     Route: 048
  20. CALCIUM [Concomitant]
     Route: 048
  21. MULTIVITAMIN [Concomitant]
     Route: 048

REACTIONS (7)
  - Haemorrhoidal haemorrhage [Not Recovered/Not Resolved]
  - Paraesthesia [Not Recovered/Not Resolved]
  - Umbilical haemorrhage [Not Recovered/Not Resolved]
  - Dry mouth [Not Recovered/Not Resolved]
  - Asthenopia [Not Recovered/Not Resolved]
  - Aphasia [Not Recovered/Not Resolved]
  - Drug dispensing error [Not Recovered/Not Resolved]
